FAERS Safety Report 5791401-8 (Version None)
Quarter: 2008Q2

REPORT INFORMATION
  Report Type: 
  Country: None (occurrence: None)
  Receive Date: 20080626
  Receipt Date: 20080304
  Transmission Date: 20081010
  Serious: No
  Sender: FDA-Public Use
  Company Number: A0713149A

PATIENT
  Sex: Female

DRUGS (2)
  1. ALLI [Suspect]
     Dates: start: 20080301, end: 20080302
  2. WARFARIN SODIUM [Concomitant]

REACTIONS (3)
  - CHEST PAIN [None]
  - CHROMATURIA [None]
  - DIZZINESS [None]
